FAERS Safety Report 9845078 (Version 1)
Quarter: 2014Q1

REPORT INFORMATION
  Report Type: Spontaneous
  Country: CN (occurrence: None)
  Receive Date: 20140122
  Receipt Date: 20140122
  Transmission Date: 20141002
  Serious: Yes (Other)
  Sender: FDA-Public Use
  Company Number: SYM-2014-14818

PATIENT
  Sex: 0

DRUGS (2)
  1. FLUOROURACIL (FLUOROURACIL) (INFUSION) (FLUOROURACIL) [Suspect]
     Indication: NASOPHARYNGEAL CANCER
  2. CISPLATIN (CISPLATIN) (INFUSION) (CISPLATIN) [Suspect]
     Indication: NASOPHARYNGEAL CANCER

REACTIONS (1)
  - Angina pectoris [None]
